FAERS Safety Report 8399398-1 (Version None)
Quarter: 2012Q2

REPORT INFORMATION
  Report Type: 
  Country: None (occurrence: None)
  Receive Date: 20120531
  Receipt Date: 20120524
  Transmission Date: 20120825
  Serious: Yes (Other)
  Sender: FDA-Public Use
  Company Number: US-UCBSA-058241

PATIENT
  Sex: Female
  Weight: 87.089 kg

DRUGS (5)
  1. KEPPRA [Suspect]
     Indication: CONVULSION
     Route: 048
     Dates: start: 20080101
  2. METOPROLOL TARTRATE [Concomitant]
     Indication: HEART RATE INCREASED
     Dosage: 6 YEARS NOW
     Route: 048
  3. LAMICTAL [Concomitant]
     Indication: CONVULSION
     Dosage: FROM 7 YEARS
     Route: 048
  4. VIMPAT [Suspect]
     Indication: GRAND MAL CONVULSION
     Dosage: PILL
     Route: 048
     Dates: start: 20120503, end: 20120524
  5. AMITRIPTYLINE HCL [Concomitant]
     Indication: HEADACHE
     Dosage: AT BED TIME AS NEEDED FROM 2 YEARS
     Route: 048

REACTIONS (5)
  - CONVULSION [None]
  - GRAND MAL CONVULSION [None]
  - HYPERHIDROSIS [None]
  - DRUG INEFFECTIVE [None]
  - HEADACHE [None]
